FAERS Safety Report 7591292 (Version 3)
Quarter: 2018Q1

REPORT INFORMATION
  Report Type: Spontaneous
  Country: US (occurrence: US)
  Receive Date: 20100917
  Receipt Date: 20180102
  Transmission Date: 20180509
  Serious: No
  Sender: FDA-Public Use
  Company Number: US-ASTRAZENECA-2006UW22645

PATIENT
  Age: 37 Year
  Sex: Female
  Weight: 113.4 kg

DRUGS (10)
  1. SEROQUEL [Suspect]
     Active Substance: QUETIAPINE FUMARATE
     Indication: ANGER
     Dosage: 100MG TWO TIMES A DAY AND 800MG AT NIGHT
     Route: 048
     Dates: start: 2003
  2. SEROQUEL [Suspect]
     Active Substance: QUETIAPINE FUMARATE
     Indication: BIPOLAR DISORDER
     Dosage: 25 MG TO 1000 MG
     Route: 048
     Dates: start: 20030320
  3. SEROQUEL [Suspect]
     Active Substance: QUETIAPINE FUMARATE
     Indication: PSYCHOTIC BEHAVIOUR
     Dosage: 100MG TWO TIMES A DAY AND 800MG AT NIGHT
     Route: 048
     Dates: start: 2003
  4. SEROQUEL [Suspect]
     Active Substance: QUETIAPINE FUMARATE
     Indication: PSYCHOTIC BEHAVIOUR
     Dosage: 25 MG TO 1000 MG
     Route: 048
     Dates: start: 20030320
  5. SEROQUEL [Suspect]
     Active Substance: QUETIAPINE FUMARATE
     Indication: ANGER
     Dosage: 25 MG TO 1000 MG
     Route: 048
     Dates: start: 20030320
  6. SEROQUEL [Suspect]
     Active Substance: QUETIAPINE FUMARATE
     Indication: POST-TRAUMATIC STRESS DISORDER
     Dosage: 25 MG TO 1000 MG
     Route: 048
     Dates: start: 20030320
  7. SEROQUEL [Suspect]
     Active Substance: QUETIAPINE FUMARATE
     Indication: BIPOLAR DISORDER
     Dosage: 100MG TWO TIMES A DAY AND 800MG AT NIGHT
     Route: 048
     Dates: start: 2003
  8. SEROQUEL [Suspect]
     Active Substance: QUETIAPINE FUMARATE
     Indication: DEPRESSION
     Dosage: 100MG TWO TIMES A DAY AND 800MG AT NIGHT
     Route: 048
     Dates: start: 2003
  9. SEROQUEL [Suspect]
     Active Substance: QUETIAPINE FUMARATE
     Indication: POST-TRAUMATIC STRESS DISORDER
     Dosage: 100MG TWO TIMES A DAY AND 800MG AT NIGHT
     Route: 048
     Dates: start: 2003
  10. SEROQUEL [Suspect]
     Active Substance: QUETIAPINE FUMARATE
     Indication: DEPRESSION
     Dosage: 25 MG TO 1000 MG
     Route: 048
     Dates: start: 20030320

REACTIONS (3)
  - Diabetic neuropathy [Unknown]
  - Obesity [Unknown]
  - Type 2 diabetes mellitus [Unknown]

NARRATIVE: CASE EVENT DATE: 2003
